FAERS Safety Report 19246595 (Version 1)
Quarter: 2021Q2

REPORT INFORMATION
  Report Type: Spontaneous
  Country: US (occurrence: US)
  Receive Date: 20210512
  Receipt Date: 20210512
  Transmission Date: 20210717
  Serious: No
  Sender: FDA-Public Use
  Company Number: None

PATIENT
  Age: 67 Year
  Sex: Male

DRUGS (1)
  1. BICTEGRAVIR/EMTRICITABINE/TENOFOVIR (BICTEGRAVIR 50MG/EMTRICITABINE 200MG/TENOFOVIR AF 25MG TAB) [Suspect]
     Active Substance: BICTEGRAVIR\EMTRICITABINE\TENOFOVIR ALAFENAMIDE
     Indication: HIV INFECTION
     Dosage: ?          OTHER DOSE:1 TAB;?
     Route: 048
     Dates: start: 20210124, end: 20210311

REACTIONS (2)
  - Rash [None]
  - Angioedema [None]

NARRATIVE: CASE EVENT DATE: 20210309
